FAERS Safety Report 12382275 (Version 5)
Quarter: 2017Q4

REPORT INFORMATION
  Report Type: Report from Study
  Country: US (occurrence: US)
  Receive Date: 20160518
  Receipt Date: 20171010
  Transmission Date: 20180320
  Serious: Yes (Other)
  Sender: FDA-Public Use
  Company Number: US-JNJFOC-20160305118

PATIENT
  Age: 79 Year
  Sex: Female

DRUGS (11)
  1. IMBRUVICA [Suspect]
     Active Substance: IBRUTINIB
     Indication: WALDENSTROM^S MACROGLOBULINAEMIA
     Route: 048
     Dates: start: 20161208
  2. PYRIDOXINE [Concomitant]
     Active Substance: PYRIDOXINE
  3. SYNTHROID [Concomitant]
     Active Substance: LEVOTHYROXINE SODIUM
  4. PRILOSEC [Concomitant]
     Active Substance: OMEPRAZOLE MAGNESIUM
  5. ATORVASTATIN [Concomitant]
     Active Substance: ATORVASTATIN
  6. VITAMIN B [Concomitant]
     Active Substance: VITAMIN B
  7. TRAZODONE [Concomitant]
     Active Substance: TRAZODONE HYDROCHLORIDE
  8. VELCADE [Concomitant]
     Active Substance: BORTEZOMIB
     Indication: PRODUCT USED FOR UNKNOWN INDICATION
     Route: 065
  9. NORVASC [Concomitant]
     Active Substance: AMLODIPINE BESYLATE
  10. CALCIUM [Concomitant]
     Active Substance: CALCIUM
  11. IMBRUVICA [Suspect]
     Active Substance: IBRUTINIB
     Indication: WALDENSTROM^S MACROGLOBULINAEMIA
     Route: 048
     Dates: start: 20151225

REACTIONS (13)
  - Nail bed bleeding [Unknown]
  - Sneezing [Unknown]
  - Ear haemorrhage [Unknown]
  - Ear infection [Unknown]
  - Headache [Not Recovered/Not Resolved]
  - Increased tendency to bruise [Unknown]
  - Syncope [Unknown]
  - Vertigo [Unknown]
  - Drug hypersensitivity [Unknown]
  - Epistaxis [Unknown]
  - Gait disturbance [Unknown]
  - Mastitis [Unknown]
  - Blood pressure increased [Unknown]

NARRATIVE: CASE EVENT DATE: 201603
